FAERS Safety Report 9489968 (Version 3)
Quarter: 2013Q3

REPORT INFORMATION
  Report Type: Report from Study
  Country: US (occurrence: US)
  Receive Date: 20130829
  Receipt Date: 20130919
  Transmission Date: 20140515
  Serious: Yes (Hospitalization, Other)
  Sender: FDA-Public Use
  Company Number: US-US-EMD SERONO, INC.-7229371

PATIENT
  Sex: Female
  Weight: 55 kg

DRUGS (4)
  1. REBIF [Suspect]
     Indication: PRODUCT USED FOR UNKNOWN INDICATION
     Route: 058
     Dates: start: 20130417
  2. TYLENOL                            /00020001/ [Concomitant]
     Indication: HEADACHE
  3. IBUPROFEN [Concomitant]
     Indication: HEADACHE
  4. GABAPENTIN [Concomitant]
     Indication: HEADACHE

REACTIONS (8)
  - Paranasal cyst [Recovered/Resolved]
  - Staphylococcal infection [Not Recovered/Not Resolved]
  - Cellulitis [Recovered/Resolved]
  - Upper respiratory tract infection [Unknown]
  - Drug hypersensitivity [Unknown]
  - Hypoaesthesia [Recovered/Resolved]
  - Pyrexia [Not Recovered/Not Resolved]
  - Injection site erythema [Not Recovered/Not Resolved]
